FAERS Safety Report 6580103-6 (Version None)
Quarter: 2010Q1

REPORT INFORMATION
  Report Type: 
  Country: None (occurrence: None)
  Receive Date: 20100212
  Receipt Date: 20100212
  Transmission Date: 20100710
  Serious: Yes (Death, Hospitalization)
  Sender: FDA-Public Use
  Company Number: JP-B.I. PHARMACEUTICALS,INC./RIDGEFIELD-2010-BP-01691NB

PATIENT
  Sex: Male

DRUGS (1)
  1. BI-SIFROL TABLETS [Suspect]
     Route: 048
     Dates: start: 20091215, end: 20100107

REACTIONS (3)
  - PNEUMONIA [None]
  - PYREXIA [None]
  - SALIVARY HYPERSECRETION [None]
